FAERS Safety Report 23026661 (Version 3)
Quarter: 2024Q4

REPORT INFORMATION
  Report Type: Report from Study
  Country: GB (occurrence: GB)
  Receive Date: 20231004
  Receipt Date: 20241015
  Transmission Date: 20250115
  Serious: Yes (Other)
  Sender: SANDOZ
  Company Number: GB-002147023-NVSC2023GB090559

PATIENT
  Sex: Male

DRUGS (2)
  1. OMNITROPE [Suspect]
     Active Substance: SOMATROPIN
     Dosage: 0.6 MG, QD
     Route: 058
     Dates: start: 20230328
  2. OMNITROPE [Suspect]
     Active Substance: SOMATROPIN
     Indication: Small for dates baby
     Dosage: 1 MG, QD
     Route: 058
     Dates: start: 20230328

REACTIONS (10)
  - Angina pectoris [Unknown]
  - Vomiting [Unknown]
  - Nervousness [Unknown]
  - Sleep disorder [Unknown]
  - Fatigue [Unknown]
  - Hunger [Unknown]
  - Headache [Unknown]
  - Injection site haemorrhage [Unknown]
  - Refusal of treatment by patient [Unknown]
  - Product dose omission issue [Unknown]
